FAERS Safety Report 10258610 (Version 2)
Quarter: 2014Q2

REPORT INFORMATION
  Report Type: Report from Study
  Country: US (occurrence: US)
  Receive Date: 20140625
  Receipt Date: 20140625
  Transmission Date: 20141212
  Serious: Yes (Death, Hospitalization, Other)
  Sender: FDA-Public Use
  Company Number: US-BRISTOL-MYERS SQUIBB COMPANY-17270729

PATIENT
  Age: 58 Year
  Sex: Male
  Weight: 68.03 kg

DRUGS (19)
  1. ATAZANAVIR [Suspect]
     Indication: HIV INFECTION
     Route: 048
     Dates: start: 20120412
  2. RALTEGRAVIR [Suspect]
     Indication: HIV INFECTION
     Route: 048
     Dates: start: 20120412
  3. RESTORIL [Concomitant]
     Dates: start: 2012
  4. MORPHINE [Concomitant]
     Dates: start: 2004
  5. OXYCODONE [Concomitant]
     Dates: start: 2007
  6. HYDROXYZINE [Concomitant]
     Dates: start: 2010
  7. REGLAN [Concomitant]
     Dates: start: 201106
  8. LYRICA [Concomitant]
     Dates: start: 201101
  9. NAMENDA [Concomitant]
     Dates: start: 201109
  10. PHENERGAN [Concomitant]
     Dates: start: 20120927
  11. PRO-AIR [Concomitant]
     Dosage: PRO-AIR HFA
     Dates: start: 20120104
  12. FOSAMAX [Concomitant]
     Dates: start: 20121004
  13. FLEXERIL [Concomitant]
     Dates: start: 20120703
  14. ZANTAC [Concomitant]
     Dates: start: 20120816
  15. VITAMIN B6 [Concomitant]
     Dates: start: 20120701
  16. VITAMIN B12 [Concomitant]
     Dates: start: 2002
  17. L-CARNITINE [Concomitant]
     Dates: start: 20120701
  18. ACYCLOVIR [Concomitant]
     Dates: start: 2010
  19. MVI [Concomitant]
     Dates: start: 201101

REACTIONS (3)
  - Death [Fatal]
  - Pneumonia [Unknown]
  - Mental disorder [Unknown]
